FAERS Safety Report 19048694 (Version 2)
Quarter: 2021Q1

REPORT INFORMATION
  Report Type: Spontaneous
  Country: US (occurrence: US)
  Receive Date: 20210323
  Receipt Date: 20210326
  Transmission Date: 20210420
  Serious: Yes (Life-Threatening, Hospitalization, Other)
  Sender: FDA-Public Use
  Company Number: US-SA-2021SA084580

PATIENT
  Age: 38 Year
  Sex: Female

DRUGS (6)
  1. AMFETAMINE;DEXAMFETAMINE [Concomitant]
     Indication: ATTENTION DEFICIT HYPERACTIVITY DISORDER
     Dosage: 30 MG
  2. ZOLPIDEM TARTRATE. [Suspect]
     Active Substance: ZOLPIDEM TARTRATE
     Dosage: 10 MG, HS
  3. QUETIAPINE FUMARATE. [Suspect]
     Active Substance: QUETIAPINE FUMARATE
     Indication: INSOMNIA
     Dosage: 25 MG, HS
  4. ZOLPIDEM TARTRATE. [Suspect]
     Active Substance: ZOLPIDEM TARTRATE
     Indication: INSOMNIA
     Dosage: 5 MG, HS
  5. QUETIAPINE FUMARATE. [Suspect]
     Active Substance: QUETIAPINE FUMARATE
     Indication: SUICIDE ATTEMPT
     Dosage: SIXTY TABLETS OF 25 MG
     Route: 048
  6. LORAZEPAM. [Concomitant]
     Active Substance: LORAZEPAM
     Indication: ANXIETY
     Dosage: 0.5 MG, QD AS NEEDED

REACTIONS (13)
  - Respiratory depression [Recovered/Resolved]
  - Aggression [Unknown]
  - Fatigue [Unknown]
  - Initial insomnia [Unknown]
  - Suicide attempt [Recovered/Resolved]
  - Behaviour disorder [Unknown]
  - Unresponsive to stimuli [Recovered/Resolved]
  - Somnolence [Unknown]
  - Intentional overdose [Unknown]
  - Mood altered [Unknown]
  - Drug ineffective [Unknown]
  - Suicidal ideation [Recovered/Resolved]
  - Depressed level of consciousness [Recovered/Resolved]
